FAERS Safety Report 8687640 (Version 3)
Quarter: 2013Q3

REPORT INFORMATION
  Report Type: Spontaneous
  Country: US (occurrence: US)
  Receive Date: 20120727
  Receipt Date: 20130801
  Transmission Date: 20140515
  Serious: Yes (Hospitalization)
  Sender: FDA-Public Use
  Company Number: US-JNJFOC-20120711303

PATIENT
  Age: 79 Year
  Sex: Female
  Weight: 55.4 kg

DRUGS (15)
  1. REMICADE [Suspect]
     Indication: RHEUMATOID ARTHRITIS
     Dosage: WEEK-0 DOSE ALSO REPORTED AS 3 MG/KG
     Route: 042
     Dates: start: 20120703
  2. REMICADE [Suspect]
     Indication: RHEUMATOID ARTHRITIS
     Dosage: DOSE ALSO REPORTED AS 3 MG/KG??THE PATIENT APPROXIMATELY RECEIVED A TOTAL OF 2 INFUSIONS
     Route: 042
     Dates: start: 20120717, end: 20120717
  3. REMICADE [Suspect]
     Indication: RHEUMATOID ARTHRITIS
     Route: 042
     Dates: start: 20010718, end: 200910
  4. TYLENOL ES [Concomitant]
     Indication: RHEUMATOID ARTHRITIS
     Dosage: 2 TABLETS TAKEN AT HOME PRIOR TO APPOINTMENT
     Route: 048
     Dates: start: 20120717
  5. TYLENOL ES [Concomitant]
     Indication: RHEUMATOID ARTHRITIS
     Route: 048
     Dates: start: 20000717
  6. TYLENOL ES [Concomitant]
     Indication: PREMEDICATION
     Route: 048
     Dates: start: 20000717
  7. TYLENOL ES [Concomitant]
     Indication: PREMEDICATION
     Dosage: 2 TABLETS TAKEN AT HOME PRIOR TO APPOINTMENT
     Route: 048
     Dates: start: 20120717
  8. DIPHENHYDRAMINE HYDROCHLORIDE [Concomitant]
     Indication: PREMEDICATION
     Route: 048
     Dates: start: 20120717
  9. PREDNISONE [Concomitant]
     Indication: RHEUMATOID ARTHRITIS
     Dosage: DAILY
     Route: 065
     Dates: start: 199206
  10. PREDNISONE [Concomitant]
     Indication: RHEUMATOID ARTHRITIS
     Route: 065
     Dates: start: 20120307
  11. PLAQUENIL [Concomitant]
     Indication: RHEUMATOID ARTHRITIS
     Route: 065
     Dates: start: 198302
  12. PREVACID [Concomitant]
     Indication: GASTROOESOPHAGEAL REFLUX DISEASE
     Route: 065
     Dates: start: 200106, end: 20130206
  13. AZULFIDINE [Concomitant]
     Indication: RHEUMATOID ARTHRITIS
     Route: 065
     Dates: start: 200112
  14. CALCIUM [Concomitant]
     Indication: MEDICAL DIET
     Route: 065
  15. OMEPRAZOLE [Concomitant]
     Indication: GASTROOESOPHAGEAL REFLUX DISEASE
     Route: 065
     Dates: start: 20130206

REACTIONS (7)
  - Psoriasis [Unknown]
  - Hypersensitivity [Recovered/Resolved]
  - Infusion related reaction [Recovered/Resolved]
  - Chest pain [Recovered/Resolved]
  - Dyspepsia [Recovered/Resolved]
  - Angioedema [Recovered/Resolved]
  - Echocardiogram abnormal [Not Recovered/Not Resolved]
